FAERS Safety Report 18777058 (Version 1)
Quarter: 2021Q1

REPORT INFORMATION
  Report Type: Spontaneous
  Country: CA (occurrence: CA)
  Receive Date: 20210123
  Receipt Date: 20210123
  Transmission Date: 20210419
  Serious: Yes (Disabling)
  Sender: FDA-Public Use
  Company Number: CA-ACCORD-214633

PATIENT
  Age: 5 Month
  Sex: Female
  Weight: 5 kg

DRUGS (55)
  1. PIPERACILLIN/TAZOBACTAM [Concomitant]
     Active Substance: PIPERACILLIN SODIUM\TAZOBACTAM SODIUM
  2. NALOXONE [Concomitant]
     Active Substance: NALOXONE
  3. MYCOPHENOLIC ACID. [Concomitant]
     Active Substance: MYCOPHENOLIC ACID
  4. MORPHINE [Concomitant]
     Active Substance: MORPHINE
  5. DIPHENHYDRAMINE. [Concomitant]
     Active Substance: DIPHENHYDRAMINE
  6. COLECALCIFEROL [Concomitant]
     Active Substance: CHOLECALCIFEROL
  7. CEFTAZIDIME/CEFTAZIDIME PENTAHYDRATE [Concomitant]
     Active Substance: CEFTAZIDIME
  8. ALTEPLASE. [Concomitant]
     Active Substance: ALTEPLASE
     Route: 042
  9. ZINC OXIDE. [Concomitant]
     Active Substance: ZINC OXIDE
  10. PROTAMINE [Concomitant]
     Active Substance: PROTAMINE
     Route: 042
  11. NIFEDIPINE. [Concomitant]
     Active Substance: NIFEDIPINE
  12. LEVOFLOXACIN. [Concomitant]
     Active Substance: LEVOFLOXACIN
  13. HEPARIN [Concomitant]
     Active Substance: HEPARIN SODIUM
  14. FUROSEMIDE. [Concomitant]
     Active Substance: FUROSEMIDE
  15. FAMOTIDINE. [Concomitant]
     Active Substance: FAMOTIDINE
  16. DEXMEDETOMIDINE/DEXMEDETOMIDINE HYDROCHLORIDE [Concomitant]
     Active Substance: DEXMEDETOMIDINE HYDROCHLORIDE
  17. DEXAMETHASONE. [Concomitant]
     Active Substance: DEXAMETHASONE
  18. CLONIDINE. [Concomitant]
     Active Substance: CLONIDINE
  19. ONDANSETRON [Concomitant]
     Active Substance: ONDANSETRON
  20. OLANZAPINE. [Concomitant]
     Active Substance: OLANZAPINE
  21. FENTANYL. [Concomitant]
     Active Substance: FENTANYL
  22. CEFAZOLIN [Concomitant]
     Active Substance: CEFAZOLIN
  23. TACROLIMUS. [Suspect]
     Active Substance: TACROLIMUS
     Indication: GRAFT VERSUS HOST DISEASE
     Dosage: 2 EVERY 1 DAYS
     Route: 048
  24. METHYLPREDNISOLONE. [Concomitant]
     Active Substance: METHYLPREDNISOLONE
  25. URSODEOXYCHOLATE SODIUM/URSODEOXYCHOLIC ACID [Concomitant]
     Active Substance: URSODIOL
  26. PREDNISONE. [Concomitant]
     Active Substance: PREDNISONE
  27. MACROGOL [Concomitant]
     Active Substance: POLYETHYLENE GLYCOLS
  28. MAGNESIUM HYDROXIDE. [Concomitant]
     Active Substance: MAGNESIUM HYDROXIDE
  29. NOREPINEPHRINE. [Concomitant]
     Active Substance: NOREPINEPHRINE
  30. METOPROLOL. [Concomitant]
     Active Substance: METOPROLOL
  31. FLUDARABINE [Concomitant]
     Active Substance: FLUDARABINE PHOSPHATE
  32. COLCHICINE. [Concomitant]
     Active Substance: COLCHICINE
  33. AMLODIPINE [Concomitant]
     Active Substance: AMLODIPINE BESYLATE
  34. SYNAGIS [Concomitant]
     Active Substance: PALIVIZUMAB
     Route: 030
  35. RANITIDINE. [Concomitant]
     Active Substance: RANITIDINE
  36. POTASSIUM [Concomitant]
     Active Substance: POTASSIUM
  37. METOCLOPRAMIDE. [Concomitant]
     Active Substance: METOCLOPRAMIDE
  38. FLUCONAZOLE. [Concomitant]
     Active Substance: FLUCONAZOLE
  39. BUSULFAN. [Concomitant]
     Active Substance: BUSULFAN
  40. SULFAMETHOXAZOLE/TRIMETHOPRIM [Concomitant]
     Active Substance: SULFAMETHOXAZOLE\TRIMETHOPRIM
  41. SPIRONOLACTONE. [Concomitant]
     Active Substance: SPIRONOLACTONE
  42. SALBUTAMOL [Concomitant]
     Active Substance: ALBUTEROL
  43. LORAZEPAM. [Concomitant]
     Active Substance: LORAZEPAM
  44. LANSOPRAZOLE. [Concomitant]
     Active Substance: LANSOPRAZOLE
  45. HYDROCORTISONE. [Concomitant]
     Active Substance: HYDROCORTISONE
  46. CETIRIZINE [Concomitant]
     Active Substance: CETIRIZINE HYDROCHLORIDE
  47. PARACETAMOL [Concomitant]
     Active Substance: ACETAMINOPHEN
  48. MICAFUNGIN. [Concomitant]
     Active Substance: MICAFUNGIN SODIUM
  49. SOLIRIS [Concomitant]
     Active Substance: ECULIZUMAB
     Route: 042
  50. LEVETIRACETAM. [Concomitant]
     Active Substance: LEVETIRACETAM
  51. HYDROCHLOROTHIAZIDE. [Concomitant]
     Active Substance: HYDROCHLOROTHIAZIDE
  52. EPINEPHRINE. [Concomitant]
     Active Substance: EPINEPHRINE
  53. DIMENHYDRINATE. [Concomitant]
     Active Substance: DIMENHYDRINATE
  54. AMOXICILLIN. [Concomitant]
     Active Substance: AMOXICILLIN
  55. ALEMTUZUMAB [Concomitant]
     Active Substance: ALEMTUZUMAB
     Route: 042

REACTIONS (1)
  - Cardiac hypertrophy [Unknown]
